FAERS Safety Report 8659895 (Version 2)
Quarter: 2020Q1

REPORT INFORMATION
  Report Type: Report from Study
  Country: JP (occurrence: JP)
  Receive Date: 20120709
  Receipt Date: 20200124
  Transmission Date: 20200409
  Serious: Yes (Hospitalization)
  Sender: FDA-Public Use
  Company Number: JP-ROCHE-GNE305376

PATIENT
  Age: 71 Year
  Sex: Male
  Weight: 61.07 kg

DRUGS (11)
  1. ISOSORBIDE MONONITRATE. [Concomitant]
     Active Substance: ISOSORBIDE MONONITRATE
     Indication: PRODUCT USED FOR UNKNOWN INDICATION
  2. BLOPRESS [Concomitant]
     Active Substance: CANDESARTAN CILEXETIL
     Indication: PRODUCT USED FOR UNKNOWN INDICATION
  3. AMARYL [Concomitant]
     Active Substance: GLIMEPIRIDE
     Indication: PRODUCT USED FOR UNKNOWN INDICATION
  4. LASIX [Concomitant]
     Active Substance: FUROSEMIDE
     Indication: PRODUCT USED FOR UNKNOWN INDICATION
  5. NORVASC [Concomitant]
     Active Substance: AMLODIPINE BESYLATE
     Indication: PRODUCT USED FOR UNKNOWN INDICATION
  6. RANIBIZUMAB. [Suspect]
     Active Substance: RANIBIZUMAB
     Indication: DIABETIC RETINAL OEDEMA
     Route: 050
     Dates: start: 20100309, end: 20100629
  7. MIGLITOL. [Concomitant]
     Active Substance: MIGLITOL
     Indication: PRODUCT USED FOR UNKNOWN INDICATION
  8. ACTOS [Concomitant]
     Active Substance: PIOGLITAZONE HYDROCHLORIDE
  9. TRAVATAN Z [Concomitant]
     Active Substance: TRAVOPROST
     Indication: PRODUCT USED FOR UNKNOWN INDICATION
  10. ACETYLSALICYLIC ACID [Concomitant]
     Active Substance: ASPIRIN
     Indication: PRODUCT USED FOR UNKNOWN INDICATION
  11. MEVALOTIN [Concomitant]
     Active Substance: PRAVASTATIN SODIUM

REACTIONS (1)
  - Angina pectoris [Recovering/Resolving]

NARRATIVE: CASE EVENT DATE: 20100804
